FAERS Safety Report 9362898 (Version 1)
Quarter: 2013Q2

REPORT INFORMATION
  Report Type: Spontaneous
  Country: US (occurrence: US)
  Receive Date: 20130624
  Receipt Date: 20130624
  Transmission Date: 20140414
  Serious: Yes (Other)
  Sender: FDA-Public Use
  Company Number: US-ROCHE-1235270

PATIENT
  Age: 47 Year
  Sex: Male
  Weight: 88 kg

DRUGS (2)
  1. PEGASYS [Suspect]
     Indication: POLYCYTHAEMIA VERA
     Route: 058
     Dates: end: 201302
  2. COUMADIN [Concomitant]
     Indication: PORTAL VEIN THROMBOSIS
     Route: 048
     Dates: end: 2005

REACTIONS (6)
  - Nausea [Recovered/Resolved]
  - Pyrexia [Recovered/Resolved]
  - Abdominal pain [Recovered/Resolved]
  - Throat tightness [Recovered/Resolved]
  - Throat irritation [Unknown]
  - Injection site pain [Unknown]
